FAERS Safety Report 13110845 (Version 1)
Quarter: 2017Q1

REPORT INFORMATION
  Report Type: Spontaneous
  Country: US (occurrence: US)
  Receive Date: 20170112
  Receipt Date: 20170112
  Transmission Date: 20170428
  Serious: Yes (Death)
  Sender: FDA-Public Use
  Company Number: US-PERRIGO-17US000268

PATIENT
  Age: 57 Year
  Sex: Female

DRUGS (9)
  1. NAPROXEN SODIUM. [Suspect]
     Active Substance: NAPROXEN SODIUM
     Indication: COMPLETED SUICIDE
     Dosage: UNK
     Route: 048
  2. CITALOPRAM [Suspect]
     Active Substance: CITALOPRAM HYDROBROMIDE
     Indication: COMPLETED SUICIDE
     Dosage: UNK
     Route: 048
  3. CLORAZEPATE [Suspect]
     Active Substance: CLORAZEPATE DIPOTASSIUM
     Indication: COMPLETED SUICIDE
     Dosage: UNK
     Route: 048
  4. ALCOHOL. [Suspect]
     Active Substance: ALCOHOL
     Indication: COMPLETED SUICIDE
     Dosage: UNK
     Route: 048
  5. OMEPRAZOLE. [Suspect]
     Active Substance: OMEPRAZOLE
     Indication: COMPLETED SUICIDE
     Dosage: UNK
     Route: 048
  6. CYANOCOBALAMIN. [Suspect]
     Active Substance: CYANOCOBALAMIN
     Indication: COMPLETED SUICIDE
     Dosage: UNK
     Route: 048
  7. BUPROPION. [Suspect]
     Active Substance: BUPROPION
     Indication: COMPLETED SUICIDE
     Dosage: UNK
     Route: 048
  8. CIMETIDINE [Suspect]
     Active Substance: CIMETIDINE
     Indication: COMPLETED SUICIDE
     Dosage: UNK
     Route: 048
  9. ALCOHOL. [Suspect]
     Active Substance: ALCOHOL
     Indication: COMPLETED SUICIDE
     Dosage: UNK
     Route: 048

REACTIONS (1)
  - Death [Fatal]
